FAERS Safety Report 4322260-8 (Version None)
Quarter: 2004Q1

REPORT INFORMATION
  Report Type: 
  Country: None (occurrence: None)
  Receive Date: 20040323
  Receipt Date: 20040309
  Transmission Date: 20041129
  Serious: Yes (Hospitalization)
  Sender: FDA-Public Use
  Company Number: 04-0018

PATIENT
  Age: 16 Year
  Sex: Female

DRUGS (4)
  1. ACCUHIST LA TABLETS [Suspect]
     Indication: ASTHMA
     Dosage: 1 TABLET BID
  2. SINGULAIR [Concomitant]
  3. FLONASE [Concomitant]
  4. PROVENTIL [Concomitant]

REACTIONS (1)
  - CONVULSION [None]
